FAERS Safety Report 10102505 (Version 1)
Quarter: 2014Q2

REPORT INFORMATION
  Report Type: Spontaneous
  Country: US (occurrence: US)
  Receive Date: 20140424
  Receipt Date: 20140424
  Transmission Date: 20141212
  Serious: Yes (Other)
  Sender: FDA-Public Use
  Company Number: US-AMGEN INC.-USASP2014028658

PATIENT
  Age: 65 Year
  Sex: Female

DRUGS (19)
  1. PROLIA [Suspect]
     Indication: OSTEOPOROSIS
     Dosage: UNK
     Route: 065
     Dates: start: 2013
  2. CALCIUM [Concomitant]
  3. VITAMIN D                          /00107901/ [Concomitant]
  4. VITAMIN C                          /00008001/ [Concomitant]
  5. BIOTIN [Concomitant]
  6. SUPER B COMPLEX                    /01995301/ [Concomitant]
  7. VITAMIN E                          /00110501/ [Concomitant]
  8. METHOTREXATE [Concomitant]
  9. FOLIC ACID [Concomitant]
  10. BUPROPION [Concomitant]
  11. HYDROCODONE [Concomitant]
     Dosage: UNK UNK, AS NECESSARY
  12. OMEPRAZOLE [Concomitant]
  13. BUSPIRON                           /00791501/ [Concomitant]
  14. PREDNISONE [Concomitant]
  15. KLONOPIN [Concomitant]
  16. TRAZODONE [Concomitant]
  17. TIZANIDINE [Concomitant]
     Dosage: UNK UNK, AS NECESSARY
  18. PROMETHAZINE [Concomitant]
     Dosage: UNK UNK, AS NECESSARY
  19. DIFLUNISAL [Concomitant]

REACTIONS (6)
  - Pneumonia [Unknown]
  - Urinary tract infection [Unknown]
  - Injection site pain [Unknown]
  - Fall [Unknown]
  - Arthralgia [Unknown]
  - Vitamin B complex deficiency [Unknown]
